FAERS Safety Report 14433279 (Version 1)
Quarter: 2018Q1

REPORT INFORMATION
  Report Type: Spontaneous
  Country: US (occurrence: US)
  Receive Date: 20180124
  Receipt Date: 20180124
  Transmission Date: 20180509
  Serious: No
  Sender: FDA-Public Use
  Company Number: US-PCCINC-2017-PEL-003230

PATIENT

DRUGS (7)
  1. VALIUM [Concomitant]
     Active Substance: DIAZEPAM
     Dosage: 3 UNK, QD
     Route: 065
  2. GABLOFEN [Suspect]
     Active Substance: BACLOFEN
     Indication: STIFF PERSON SYNDROME
  3. PANTOPRAZOLE [Concomitant]
     Active Substance: PANTOPRAZOLE
     Dosage: UNK
     Route: 065
  4. DIAZEPAM. [Concomitant]
     Active Substance: DIAZEPAM
     Dosage: UNK, PRN
     Route: 065
  5. OXYCODONE [Concomitant]
     Active Substance: OXYCODONE
     Dosage: UNK
     Route: 065
  6. OXYCONTIN [Concomitant]
     Active Substance: OXYCODONE HYDROCHLORIDE
     Dosage: UNK
     Route: 048
  7. GABLOFEN [Suspect]
     Active Substance: BACLOFEN
     Indication: MUSCLE SPASTICITY
     Dosage: 927.9 ?G, QD
     Route: 037
     Dates: start: 20141010

REACTIONS (7)
  - Feeling hot [Unknown]
  - Condition aggravated [Unknown]
  - Back pain [Unknown]
  - Device issue [Unknown]
  - Musculoskeletal discomfort [Unknown]
  - Polyuria [Unknown]
  - Weight decreased [Unknown]

NARRATIVE: CASE EVENT DATE: 2016
